FAERS Safety Report 22594132 (Version 1)
Quarter: 2023Q2

REPORT INFORMATION
  Report Type: Spontaneous
  Country: US (occurrence: None)
  Receive Date: 20230613
  Receipt Date: 20230613
  Transmission Date: 20230722
  Serious: Yes (Other)
  Sender: FDA-Public Use
  Company Number: 2023A136544

PATIENT

DRUGS (1)
  1. DALIRESP [Suspect]
     Active Substance: ROFLUMILAST
     Route: 048

REACTIONS (6)
  - Dementia [Unknown]
  - Illness [Unknown]
  - Emotional disorder [Unknown]
  - Lacrimation increased [Unknown]
  - Malaise [Unknown]
  - Product dose omission issue [Unknown]
